FAERS Safety Report 24237038 (Version 1)
Quarter: 2024Q3

REPORT INFORMATION
  Report Type: Spontaneous
  Country: NL (occurrence: NL)
  Receive Date: 20240822
  Receipt Date: 20240822
  Transmission Date: 20241017
  Serious: Yes (Life-Threatening, Hospitalization)
  Sender: RANBAXY
  Company Number: NL-SUN PHARMACEUTICAL INDUSTRIES LTD-2024RR-463531

PATIENT
  Age: 73 Year
  Sex: Male
  Weight: 67.9 kg

DRUGS (1)
  1. SUNITINIB [Suspect]
     Active Substance: SUNITINIB
     Indication: Chromophobe renal cell carcinoma
     Dosage: 1 X PER DAY 1PIECE
     Route: 048
     Dates: start: 20240515, end: 20240517

REACTIONS (1)
  - Ventricular fibrillation [Recovering/Resolving]
